FAERS Safety Report 8289131-6 (Version None)
Quarter: 2012Q2

REPORT INFORMATION
  Report Type: 
  Country: None (occurrence: None)
  Receive Date: 20120417
  Receipt Date: 20120409
  Transmission Date: 20120825
  Serious: Yes (Hospitalization)
  Sender: FDA-Public Use
  Company Number: JP-JNJFOC-20120405480

PATIENT
  Sex: Female
  Weight: 59 kg

DRUGS (29)
  1. DOXORUBICIN HCL [Suspect]
     Dosage: CYCLE 1
     Route: 042
     Dates: start: 20100108, end: 20100108
  2. ETODOLAC [Concomitant]
     Route: 048
     Dates: start: 20110419, end: 20120105
  3. DOXORUBICIN HCL [Suspect]
     Dosage: CYCLE 15
     Route: 042
     Dates: start: 20110204, end: 20110204
  4. DOXORUBICIN HCL [Suspect]
     Dosage: CYCLE 6
     Route: 042
     Dates: start: 20100528, end: 20100528
  5. DOXORUBICIN HCL [Suspect]
     Indication: OVARIAN CANCER RECURRENT
     Dosage: CYCLE 7
     Route: 042
     Dates: start: 20100625, end: 20100625
  6. DOXORUBICIN HCL [Suspect]
     Dosage: CYCLE 9
     Route: 042
     Dates: start: 20100820, end: 20100820
  7. DOXORUBICIN HCL [Suspect]
     Dosage: CYCLE 11
     Route: 042
     Dates: start: 20101015, end: 20101015
  8. DOXORUBICIN HCL [Suspect]
     Dosage: CYCLE 12
     Route: 042
     Dates: start: 20101112, end: 20101112
  9. DOXORUBICIN HCL [Suspect]
     Dosage: CYCLE 16
     Route: 042
     Dates: start: 20110304, end: 20110304
  10. DOXORUBICIN HCL [Suspect]
     Dosage: CYCLE 5
     Route: 042
     Dates: start: 20100430, end: 20100430
  11. HEPARIN [Concomitant]
     Route: 061
     Dates: start: 20100114, end: 20100129
  12. VOLTAREN [Concomitant]
     Route: 049
     Dates: start: 20100304, end: 20110711
  13. CLOBETASOL PROPIONATE [Concomitant]
     Route: 061
     Dates: start: 20100413, end: 20110422
  14. AZUNOL [Concomitant]
     Route: 061
     Dates: start: 20100401, end: 20110422
  15. DOXORUBICIN HCL [Suspect]
     Dosage: CYCLE 8
     Route: 042
     Dates: start: 20100723, end: 20100723
  16. DOXORUBICIN HCL [Suspect]
     Dosage: CYCLE 13
     Route: 042
     Dates: start: 20101210, end: 20101210
  17. OXINORM [Concomitant]
     Route: 048
     Dates: start: 20110630, end: 20110820
  18. DOXORUBICIN HCL [Suspect]
     Dosage: CYCLE 4
     Route: 042
     Dates: start: 20100402, end: 20100402
  19. DOXORUBICIN HCL [Suspect]
     Dosage: CYCLE 17
     Route: 042
     Dates: start: 20110404, end: 20110404
  20. DOXORUBICIN HCL [Suspect]
     Dosage: CYCLE 14
     Route: 042
     Dates: start: 20110107, end: 20110107
  21. NORVASC [Concomitant]
     Route: 048
  22. LANTUS [Concomitant]
     Route: 058
     Dates: start: 20090116, end: 20091129
  23. DOXORUBICIN HCL [Suspect]
     Dosage: CYCLE 10
     Route: 042
     Dates: start: 20100917, end: 20100917
  24. DOXORUBICIN HCL [Suspect]
     Dosage: CYCLE 3
     Route: 042
     Dates: start: 20100305, end: 20100305
  25. DOXORUBICIN HCL [Suspect]
     Dosage: CYCLE 2
     Route: 042
     Dates: start: 20100205, end: 20100205
  26. LANTUS [Concomitant]
     Route: 058
     Dates: start: 20101130, end: 20111018
  27. AZUNOL [Concomitant]
     Route: 049
     Dates: start: 20100204, end: 20100304
  28. WHITE PETROLATUM [Concomitant]
     Route: 061
     Dates: start: 20100306, end: 20100401
  29. AZITHROMYCIN [Concomitant]
     Route: 048
     Dates: start: 20110422, end: 20110422

REACTIONS (4)
  - LYMPH NODE ABSCESS [None]
  - ORAL INFECTION [None]
  - STOMATITIS [None]
  - LYMPH NODE PAIN [None]
